FAERS Safety Report 18641512 (Version 9)
Quarter: 2022Q3

REPORT INFORMATION
  Report Type: Report from Study
  Country: US (occurrence: US)
  Receive Date: 20201221
  Receipt Date: 20220914
  Transmission Date: 20221026
  Serious: Yes (Life-Threatening, Hospitalization, Other)
  Sender: FDA-Public Use
  Company Number: US-AMRYT PHARMACEUTICALS DAC-AEGR005054

PATIENT
  Age: 20 Year
  Sex: Male
  Weight: 88.435 kg

DRUGS (126)
  1. METRELEPTIN [Suspect]
     Active Substance: METRELEPTIN
     Indication: Acquired generalised lipodystrophy
     Dosage: 2.5 MILLIGRAM, QD
     Route: 058
     Dates: start: 20160613, end: 20160619
  2. METRELEPTIN [Suspect]
     Active Substance: METRELEPTIN
     Dosage: 2.75 MILLIGRAM, QD
     Route: 058
     Dates: start: 20160620, end: 20160626
  3. METRELEPTIN [Suspect]
     Active Substance: METRELEPTIN
     Dosage: 3.0 MILLIGRAM, QD
     Route: 058
     Dates: start: 20160627, end: 20160704
  4. METRELEPTIN [Suspect]
     Active Substance: METRELEPTIN
     Dosage: 3.25 MILLIGRAM, QD
     Route: 058
     Dates: start: 20160704, end: 20160710
  5. METRELEPTIN [Suspect]
     Active Substance: METRELEPTIN
     Dosage: 3.5 MILLIGRAM, QD
     Route: 058
     Dates: start: 20160711, end: 20160717
  6. METRELEPTIN [Suspect]
     Active Substance: METRELEPTIN
     Dosage: 3.75 MILLIGRAM, QD
     Route: 058
     Dates: start: 20160718, end: 20160724
  7. METRELEPTIN [Suspect]
     Active Substance: METRELEPTIN
     Dosage: 4.00 MILLIGRAM, QD
     Route: 058
     Dates: start: 20160725, end: 20160731
  8. METRELEPTIN [Suspect]
     Active Substance: METRELEPTIN
     Dosage: 4.25 MILLIGRAM, QD
     Route: 058
     Dates: start: 20160801, end: 20160807
  9. METRELEPTIN [Suspect]
     Active Substance: METRELEPTIN
     Dosage: 4.5 MILLIGRAM, QD
     Route: 058
     Dates: start: 20160808, end: 20160814
  10. METRELEPTIN [Suspect]
     Active Substance: METRELEPTIN
     Dosage: 4.75 MILLIGRAM, QD
     Route: 058
     Dates: start: 20160815, end: 20160821
  11. METRELEPTIN [Suspect]
     Active Substance: METRELEPTIN
     Dosage: 5 MILLIGRAM, QD
     Route: 058
     Dates: start: 20160822, end: 20160828
  12. METRELEPTIN [Suspect]
     Active Substance: METRELEPTIN
     Dosage: 5.25 MILLIGRAM, QD
     Route: 058
     Dates: start: 20160829, end: 20160904
  13. METRELEPTIN [Suspect]
     Active Substance: METRELEPTIN
     Dosage: 5.5 MILLIGRAM, QD
     Route: 058
     Dates: start: 20160905, end: 20160911
  14. METRELEPTIN [Suspect]
     Active Substance: METRELEPTIN
     Dosage: 5.75 MILLIGRAM, QD
     Route: 058
     Dates: start: 20160912, end: 20160918
  15. METRELEPTIN [Suspect]
     Active Substance: METRELEPTIN
     Dosage: 6 MILLIGRAM, QD
     Route: 058
     Dates: start: 20160919, end: 20160925
  16. METRELEPTIN [Suspect]
     Active Substance: METRELEPTIN
     Dosage: 6.25 MILLIGRAM, QD
     Route: 058
     Dates: start: 20160926, end: 20161002
  17. METRELEPTIN [Suspect]
     Active Substance: METRELEPTIN
     Dosage: 6.5 MILLIGRAM, QD
     Route: 058
     Dates: start: 20161003, end: 20161009
  18. METRELEPTIN [Suspect]
     Active Substance: METRELEPTIN
     Dosage: 6.75 MILLIGRAM, QD
     Route: 058
     Dates: start: 20161010, end: 20161016
  19. METRELEPTIN [Suspect]
     Active Substance: METRELEPTIN
     Dosage: 7 MILLIGRAM, QD
     Route: 058
     Dates: start: 20161017, end: 20161023
  20. METRELEPTIN [Suspect]
     Active Substance: METRELEPTIN
     Dosage: 7.25 MILLIGRAM, QD
     Route: 058
     Dates: start: 20161024, end: 20161030
  21. METRELEPTIN [Suspect]
     Active Substance: METRELEPTIN
     Dosage: 7.5 MILLIGRAM, QD
     Route: 058
     Dates: start: 20161031, end: 20161106
  22. METRELEPTIN [Suspect]
     Active Substance: METRELEPTIN
     Dosage: 7.75 MILLIGRAM, QD
     Route: 058
     Dates: start: 20161107, end: 20161113
  23. METRELEPTIN [Suspect]
     Active Substance: METRELEPTIN
     Dosage: 8 MILLIGRAM, QD
     Route: 058
     Dates: start: 20161114, end: 20161120
  24. METRELEPTIN [Suspect]
     Active Substance: METRELEPTIN
     Dosage: 8.25 MILLIGRAM, QD
     Route: 058
     Dates: start: 20161121, end: 20161127
  25. METRELEPTIN [Suspect]
     Active Substance: METRELEPTIN
     Dosage: 8.5 MILLIGRAM, QD
     Route: 058
     Dates: start: 20161128, end: 20161204
  26. METRELEPTIN [Suspect]
     Active Substance: METRELEPTIN
     Dosage: 8.75 MILLIGRAM, QD
     Route: 058
     Dates: start: 20161205, end: 20161211
  27. METRELEPTIN [Suspect]
     Active Substance: METRELEPTIN
     Dosage: 9 MILLIGRAM, QD
     Route: 058
     Dates: start: 20161212, end: 20161218
  28. METRELEPTIN [Suspect]
     Active Substance: METRELEPTIN
     Dosage: 9.25 MILLIGRAM, QD
     Route: 058
     Dates: start: 20161219, end: 20161221
  29. METRELEPTIN [Suspect]
     Active Substance: METRELEPTIN
     Dosage: 5 MILLIGRAM, QD
     Route: 058
     Dates: start: 20161222, end: 20201202
  30. METRELEPTIN [Suspect]
     Active Substance: METRELEPTIN
     Dosage: 5 MILLIGRAM, QOD
     Route: 058
     Dates: start: 20201208
  31. METRELEPTIN [Suspect]
     Active Substance: METRELEPTIN
     Dosage: 5 MILLIGRAM, QD
     Route: 058
  32. METRELEPTIN [Suspect]
     Active Substance: METRELEPTIN
     Dosage: 5 MILLIGRAM (1 ML OR 100 UNITS), QD
     Route: 058
     Dates: end: 2022
  33. SPIRONOLACTONE [Concomitant]
     Active Substance: SPIRONOLACTONE
     Indication: Oedema peripheral
     Dosage: 25 MILLIGRAM, BID
     Route: 048
     Dates: start: 20190108, end: 20190131
  34. SPIRONOLACTONE [Concomitant]
     Active Substance: SPIRONOLACTONE
     Indication: Hypertension
     Dosage: 25 MILLIGRAM, QD
     Route: 048
     Dates: start: 20190612, end: 20201202
  35. SPIRONOLACTONE [Concomitant]
     Active Substance: SPIRONOLACTONE
     Dosage: 25 MILLIGRAM, QD
     Route: 048
     Dates: start: 20210123, end: 20211026
  36. ASPIRIN [Concomitant]
     Active Substance: ASPIRIN
     Indication: Cardiac failure congestive
     Dosage: 81 MILLIGRAM, QD
     Dates: start: 20180315
  37. ACETAMINOPHEN [Concomitant]
     Active Substance: ACETAMINOPHEN
     Indication: Cardiac failure congestive
     Dosage: 1000 MILLIGRAM, PRN Q6HRS
     Route: 048
     Dates: start: 20210119, end: 20210119
  38. AZATHIOPRINE [Concomitant]
     Active Substance: AZATHIOPRINE
     Indication: Immunosuppression
     Dosage: 100 MILLIGRAM, QD
     Route: 048
     Dates: start: 20190829, end: 20201204
  39. AZATHIOPRINE [Concomitant]
     Active Substance: AZATHIOPRINE
     Dosage: 50 MILLIGRAM, QD
     Route: 048
     Dates: start: 20190725, end: 20190828
  40. AZATHIOPRINE [Concomitant]
     Active Substance: AZATHIOPRINE
     Dosage: 50 MILLIGRAM, QD
     Route: 048
     Dates: start: 20201205
  41. AZATHIOPRINE [Concomitant]
     Active Substance: AZATHIOPRINE
     Dosage: 100 MILLIGRAM, QD
     Route: 048
     Dates: start: 20210325
  42. BISOPROLOL [Concomitant]
     Active Substance: BISOPROLOL
     Indication: Hypertension
     Dosage: 10 MILLIGRAM, QD
     Route: 048
     Dates: start: 20190822, end: 20201202
  43. BISOPROLOL [Concomitant]
     Active Substance: BISOPROLOL
     Dosage: 5 MILLIGRAM, QD
     Route: 048
  44. BISOPROLOL [Concomitant]
     Active Substance: BISOPROLOL
     Dosage: 2.5 MILLIGRAM, QD
     Route: 048
     Dates: start: 20210104, end: 20210119
  45. DIGOXIN [Concomitant]
     Active Substance: DIGOXIN
     Indication: Atrial fibrillation
     Dosage: 125 MICROGRAM, BID
     Route: 048
     Dates: start: 20180108, end: 20201202
  46. HEPARIN [Concomitant]
     Active Substance: HEPARIN SODIUM
     Indication: Cardiac failure congestive
     Dosage: 28 IU/KG/HR
     Route: 042
     Dates: start: 20180312, end: 20180312
  47. HEPARIN [Concomitant]
     Active Substance: HEPARIN SODIUM
     Indication: Atrial fibrillation
     Dosage: 1000 IU/ML SINGLE
     Route: 042
     Dates: start: 20201206, end: 20201207
  48. HEPARIN [Concomitant]
     Active Substance: HEPARIN SODIUM
     Dosage: 1000 IU/ML SINGLE
     Route: 042
     Dates: start: 20201211, end: 20201212
  49. HEPARIN [Concomitant]
     Active Substance: HEPARIN SODIUM
     Dosage: 1000 IU/ML SINGLE
     Route: 042
     Dates: start: 20201222, end: 20201223
  50. HYDRALAZINE [Concomitant]
     Active Substance: HYDRALAZINE HYDROCHLORIDE
     Indication: Hypertension
     Dosage: 10 MILLIGRAM, TID
     Route: 048
     Dates: start: 20201116, end: 20201202
  51. HYDRALAZINE [Concomitant]
     Active Substance: HYDRALAZINE HYDROCHLORIDE
     Dosage: 50 MILLIGRAM, TID
     Route: 048
     Dates: start: 20210114, end: 20210201
  52. INSULIN NOS [Concomitant]
     Active Substance: INSULIN NOS
     Indication: Diabetes mellitus
     Dosage: 2000 INTERNATIONAL UNIT, QD, IN INSULIN PUMP
     Route: 058
  53. MELATONIN [Concomitant]
     Active Substance: MELATONIN
     Indication: Product used for unknown indication
     Dosage: UNK
  54. NYSTATIN [Concomitant]
     Active Substance: NYSTATIN
     Indication: Product used for unknown indication
     Dosage: UNK
  55. ONDANSETRON [Concomitant]
     Active Substance: ONDANSETRON
     Indication: Product used for unknown indication
     Dosage: UNK
  56. SACUBITRIL\VALSARTAN [Concomitant]
     Active Substance: SACUBITRIL\VALSARTAN
     Indication: Hypertension
     Dosage: 100 MILLIGRAM, QD
     Route: 048
     Dates: start: 2017, end: 20190822
  57. SACUBITRIL\VALSARTAN [Concomitant]
     Active Substance: SACUBITRIL\VALSARTAN
     Indication: Cardiac failure congestive
     Dosage: 51 MILLIGRAM, QD
     Route: 048
     Dates: start: 20180828, end: 20190925
  58. SACUBITRIL\VALSARTAN [Concomitant]
     Active Substance: SACUBITRIL\VALSARTAN
     Dosage: 103 MILLIGRAM, BID
     Route: 048
     Dates: start: 20190926, end: 20201202
  59. SEVELAMER [Concomitant]
     Active Substance: SEVELAMER
     Indication: Product used for unknown indication
  60. SIMETHICONE (DIMETHICONE) [Concomitant]
     Active Substance: DIMETHICONE
     Indication: Product used for unknown indication
     Dosage: UNK
  61. TORSEMIDE [Concomitant]
     Active Substance: TORSEMIDE
     Indication: Cardiac failure congestive
     Dosage: 20 MILLIGRAM, QD
     Route: 048
     Dates: start: 20180315, end: 20180827
  62. TORSEMIDE [Concomitant]
     Active Substance: TORSEMIDE
     Dosage: 30 MILLIGRAM, QD
     Route: 048
     Dates: start: 20180828, end: 20190416
  63. TORSEMIDE [Concomitant]
     Active Substance: TORSEMIDE
     Dosage: 40 MILLIGRAM, QD
     Route: 048
     Dates: start: 20190417, end: 20200921
  64. TORSEMIDE [Concomitant]
     Active Substance: TORSEMIDE
     Dosage: 80 MILLIGRAM, QD
     Route: 048
     Dates: start: 20200922, end: 20200923
  65. TORSEMIDE [Concomitant]
     Active Substance: TORSEMIDE
     Dosage: 40 MILLIGRAM, QD
     Route: 048
     Dates: start: 20200924, end: 20201228
  66. TORSEMIDE [Concomitant]
     Active Substance: TORSEMIDE
     Dosage: 60 MILLIGRAM, QD
     Route: 048
     Dates: start: 202012
  67. TORSEMIDE [Concomitant]
     Active Substance: TORSEMIDE
     Dosage: 100 MILLIGRAM, QD
     Route: 048
     Dates: start: 20210114, end: 20210123
  68. TORSEMIDE [Concomitant]
     Active Substance: TORSEMIDE
     Dosage: 150 MILLIGRAM, QD QPM
     Route: 048
     Dates: start: 20210114, end: 20210123
  69. TORSEMIDE [Concomitant]
     Active Substance: TORSEMIDE
     Dosage: 100 MILLIGRAM, BID
     Route: 048
     Dates: start: 20201229, end: 20210113
  70. TORSEMIDE [Concomitant]
     Active Substance: TORSEMIDE
     Dosage: 100 MILLIGRAM, BID
     Route: 048
     Dates: start: 20210124, end: 20211025
  71. TRIMETHOBENZAMIDE [Concomitant]
     Active Substance: TRIMETHOBENZAMIDE
     Indication: Nausea
     Dosage: 300 MILLIGRAM, SINGLE
     Route: 048
     Dates: start: 20210122, end: 20210122
  72. WARFARIN [Concomitant]
     Active Substance: WARFARIN
     Indication: Atrial fibrillation
     Dosage: 7.5 MILLIGRAM, QD
     Route: 048
     Dates: start: 20180315, end: 20180827
  73. WARFARIN [Concomitant]
     Active Substance: WARFARIN
     Dosage: 5 MILLIGRAM, 6 X WEEK
     Route: 048
     Dates: start: 20180828, end: 20201102
  74. WARFARIN [Concomitant]
     Active Substance: WARFARIN
     Dosage: 5 MILLIGRAM, 1 X WEEK
     Route: 048
     Dates: start: 20180828, end: 20201102
  75. WARFARIN [Concomitant]
     Active Substance: WARFARIN
     Dosage: 5 MILLIGRAM, QD
     Route: 048
     Dates: start: 20201103, end: 20201202
  76. WARFARIN [Concomitant]
     Active Substance: WARFARIN
     Dosage: 5 MILLIGRAM, ON SUN, MON, WED, THUR, FRI
     Route: 048
     Dates: start: 20201229, end: 20210123
  77. WARFARIN [Concomitant]
     Active Substance: WARFARIN
     Dosage: 5 MILLIGRAM, ON TUES AND SAT
     Route: 048
     Dates: start: 20201229, end: 20210123
  78. WARFARIN [Concomitant]
     Active Substance: WARFARIN
     Dosage: 6 MILLIGRAM, QD
     Dates: start: 20210124, end: 20211025
  79. WARFARIN [Concomitant]
     Active Substance: WARFARIN
     Dosage: 2 MILLIGRAM, SINGLE
     Route: 048
     Dates: start: 20211029, end: 20211029
  80. WARFARIN [Concomitant]
     Active Substance: WARFARIN
     Dosage: 7.5 MILLIGRAM, QD
     Route: 048
     Dates: start: 20211029, end: 20211101
  81. WARFARIN [Concomitant]
     Active Substance: WARFARIN
     Dosage: 5 MILLIGRAM, MONDAY WEEKLY
     Route: 048
     Dates: start: 20211108
  82. WARFARIN [Concomitant]
     Active Substance: WARFARIN
     Dosage: 7.5 MILLIGRAM, 6 TIMES A WEEK
     Route: 048
     Dates: start: 20211102
  83. ATORVASTATIN [Concomitant]
     Active Substance: ATORVASTATIN
     Indication: Hypertriglyceridaemia
     Dosage: 20 MILLIGRAM, QD
     Route: 048
     Dates: start: 20161223, end: 2020
  84. CO-ENZIME Q-10 [Concomitant]
     Indication: Cardiomyopathy
     Dosage: 10 MILLIGRAM, QD
     Route: 048
     Dates: start: 201711, end: 20210205
  85. FISH OIL\OMEGA-3 FATTY ACIDS [Concomitant]
     Active Substance: FISH OIL\OMEGA-3 FATTY ACIDS
     Indication: Hypertriglyceridaemia
     Dosage: 1 GRAM, QD
     Route: 048
     Dates: start: 2017
  86. APIXABAN [Concomitant]
     Active Substance: APIXABAN
     Indication: Cardiac failure congestive
     Dosage: 5 MILLIGRAM, BID
     Route: 048
     Dates: start: 20180108, end: 20180131
  87. FUROSEMIDE [Concomitant]
     Active Substance: FUROSEMIDE
     Indication: Oedema peripheral
     Dosage: 40 MILLIGRAM, QD
     Route: 048
     Dates: start: 2016, end: 20181024
  88. FUROSEMIDE [Concomitant]
     Active Substance: FUROSEMIDE
     Indication: Cardiac failure congestive
     Dosage: 40 MILLIGRAM, BID
     Route: 042
     Dates: start: 20180107, end: 20180107
  89. FUROSEMIDE [Concomitant]
     Active Substance: FUROSEMIDE
     Dosage: 40 MILLIGRAM, QD
     Route: 042
     Dates: start: 20180306, end: 20180312
  90. CARVEDILOL [Concomitant]
     Active Substance: CARVEDILOL
     Indication: Cardiac failure congestive
     Dosage: 12.5 MILLIGRAM, BID
     Route: 048
     Dates: end: 20181024
  91. LISINOPRIL [Concomitant]
     Active Substance: LISINOPRIL
     Indication: Hypertension
     Dosage: 10 MILLIGRAM, QD
     Route: 048
     Dates: end: 20181024
  92. MAGNESIUM OXIDE [Concomitant]
     Active Substance: MAGNESIUM OXIDE
     Indication: Blood magnesium decreased
     Dosage: 250 MILLIGRAM, QD
     Route: 048
     Dates: end: 20181024
  93. MAGNESIUM OXIDE [Concomitant]
     Active Substance: MAGNESIUM OXIDE
     Dosage: 250 MILLIGRAM, QD
     Route: 048
     Dates: start: 20200325, end: 20201202
  94. POTASSIUM CHLORIDE [Concomitant]
     Active Substance: POTASSIUM CHLORIDE
     Indication: Blood potassium decreased
     Dosage: 1 DOSAGE FORM, QD
     Route: 048
     Dates: end: 20181226
  95. POTASSIUM CHLORIDE [Concomitant]
     Active Substance: POTASSIUM CHLORIDE
     Dosage: 40 MILLIEQUIVALENT, QD
     Route: 048
     Dates: start: 20210120
  96. METOPROLOL SUCCINATE [Concomitant]
     Active Substance: METOPROLOL SUCCINATE
     Indication: Hypertension
     Dosage: 100 MILLIGRAM, QD
     Route: 048
     Dates: start: 2017, end: 20190822
  97. METOPROLOL SUCCINATE [Concomitant]
     Active Substance: METOPROLOL SUCCINATE
     Dosage: 12.5 MILLIGRAM, QD
     Route: 048
     Dates: start: 20210123
  98. MILRINONE [Concomitant]
     Active Substance: MILRINONE
     Indication: Catheterisation cardiac
     Dosage: 0.2 MCG/KG/MIN
     Route: 042
     Dates: start: 20180306, end: 20180307
  99. NIPRIDE [Concomitant]
     Active Substance: SODIUM NITROPRUSSIDE
     Indication: Cardiac failure congestive
     Dosage: UNK
     Route: 042
     Dates: start: 20180306, end: 20180307
  100. EPINEPHRINE\LIDOCAINE [Concomitant]
     Active Substance: EPINEPHRINE\LIDOCAINE
     Indication: Implantable defibrillator insertion
     Dosage: 1 DOSAGE FORM, QD
     Route: 030
     Dates: start: 20180726, end: 20180726
  101. CEFAZOLIN [Concomitant]
     Active Substance: CEFAZOLIN
     Indication: Implantable defibrillator insertion
     Dosage: 1 GRAM, QD
     Route: 042
     Dates: start: 20180726, end: 20180726
  102. DEXTROSE [Concomitant]
     Active Substance: DEXTROSE
     Indication: Implantable defibrillator insertion
     Dosage: 13 MILLILITER, QD
     Route: 042
     Dates: start: 20180726, end: 20180726
  103. AUGMENTIN [Concomitant]
     Active Substance: AMOXICILLIN\CLAVULANATE POTASSIUM
     Indication: Catheterisation cardiac
     Dosage: 1 DOSAGE FORM, BID
     Route: 048
     Dates: start: 20180823, end: 20180827
  104. GLUCAGON [Concomitant]
     Active Substance: GLUCAGON
     Indication: Hypoglycaemia
     Dosage: 1 MILLIGRAM, PRN
     Route: 058
  105. CIPRO [Concomitant]
     Active Substance: CIPROFLOXACIN HYDROCHLORIDE
     Indication: Ear infection
     Dosage: 500 MILLIGRAM, QD
     Route: 048
     Dates: start: 20190816, end: 20190819
  106. DILAUDID [Concomitant]
     Active Substance: HYDROMORPHONE HYDROCHLORIDE
     Indication: Ear infection
     Dosage: 4 MILLIGRAM, QD
     Route: 048
     Dates: start: 20190816, end: 20190816
  107. AMIODARONE [Concomitant]
     Active Substance: AMIODARONE
     Indication: Cardiac failure congestive
     Dosage: 400 MILLIGRAM, BID
     Route: 048
     Dates: start: 20190919, end: 20191003
  108. AMIODARONE [Concomitant]
     Active Substance: AMIODARONE
     Dosage: 200 MILLIGRAM, QD
     Route: 048
     Dates: start: 20191004, end: 20200930
  109. PREDNISONE [Concomitant]
     Active Substance: PREDNISONE
     Indication: Pruritus
     Dosage: 10 MILLIGRAM, QD
     Route: 048
     Dates: start: 20200521, end: 202006
  110. URSODIOL [Concomitant]
     Active Substance: URSODIOL
     Indication: Hepatic fibrosis
     Dosage: 500 MILLIGRAM, BID
     Route: 048
     Dates: start: 20200826, end: 20201228
  111. HUMULIN R [Concomitant]
     Active Substance: INSULIN HUMAN
     Indication: Diabetes mellitus
     Dosage: 2000 UNITS, QD VIA CONTINOUS PUMP
  112. ZINC [Concomitant]
     Active Substance: ZINC
     Indication: Product used for unknown indication
  113. VITAMIN D3 [Concomitant]
     Active Substance: CHOLECALCIFEROL
     Indication: Product used for unknown indication
  114. IRON [Concomitant]
     Active Substance: IRON
     Indication: Product used for unknown indication
     Dosage: UNK
  115. VITAMIN C [Concomitant]
     Active Substance: ASCORBIC ACID
     Indication: Product used for unknown indication
  116. BACTERIOSTATIC WATER [Concomitant]
     Active Substance: WATER
     Indication: Product used for unknown indication
  117. ARGATROBAN [Concomitant]
     Active Substance: ARGATROBAN
     Indication: Prophylaxis
     Dosage: 1 DOSAGE FORM, SINGLE.1 MCG / KG / HOUR
     Route: 042
     Dates: start: 20201221, end: 20201221
  118. ARGATROBAN [Concomitant]
     Active Substance: ARGATROBAN
     Dosage: 1 DOSAGE FORM, SINGLE.1 MCG / KG / HOUR
     Route: 042
     Dates: start: 20201216, end: 20201216
  119. COENZYME Q10 [Concomitant]
     Active Substance: DIETARY SUPPLEMENT\UBIDECARENONE
     Indication: Product used for unknown indication
  120. VALSARTAN [Concomitant]
     Active Substance: VALSARTAN
     Indication: Cardiac failure congestive
     Dosage: 40 MILLIGRAM, QD
     Route: 048
     Dates: start: 20210123, end: 20211021
  121. VALSARTAN [Concomitant]
     Active Substance: VALSARTAN
     Dosage: 80 MILLIGRAM, BID
     Route: 048
     Dates: start: 20211022
  122. ALPRAZOLAM [Concomitant]
     Active Substance: ALPRAZOLAM
     Indication: Anxiety
     Dosage: 0.25 MILLIGRAM, PRN
     Route: 048
     Dates: start: 20211030
  123. ERGOCALCIFEROL [Concomitant]
     Active Substance: ERGOCALCIFEROL
     Indication: Vitamin D decreased
     Dosage: 50000 INTERNATIONAL UNIT, WEEKLY
     Route: 048
     Dates: start: 20210908
  124. GABAPENTIN [Concomitant]
     Active Substance: GABAPENTIN
     Indication: Neuropathy peripheral
     Dosage: 300 MILLIGRAM, PRN
     Route: 048
     Dates: start: 20211005
  125. SERTRALINE [Concomitant]
     Active Substance: SERTRALINE HYDROCHLORIDE
     Indication: Anxiety
     Dosage: 25 MILLIGRAM, QD
     Route: 048
     Dates: start: 20211101
  126. ZOLOFT [Concomitant]
     Active Substance: SERTRALINE HYDROCHLORIDE
     Indication: Product used for unknown indication
     Dosage: UNK

REACTIONS (24)
  - Cardiogenic shock [Recovered/Resolved]
  - Acute respiratory failure [Recovered/Resolved]
  - Acute kidney injury [Recovered/Resolved]
  - Atrial fibrillation [Recovered/Resolved with Sequelae]
  - Left ventricular failure [Recovered/Resolved with Sequelae]
  - Acute left ventricular failure [Recovered/Resolved]
  - Atrial thrombosis [Recovered/Resolved]
  - Acute kidney injury [Recovered/Resolved]
  - Fall [Recovered/Resolved]
  - Subarachnoid haemorrhage [Recovered/Resolved]
  - Therapy interrupted [Recovered/Resolved]
  - Medical device site haematoma [Recovered/Resolved]
  - Dyspnoea exertional [Not Recovered/Not Resolved]
  - Insomnia [Not Recovered/Not Resolved]
  - Sleep apnoea syndrome [Not Recovered/Not Resolved]
  - Hyperkalaemia [Recovered/Resolved]
  - Pruritus [Recovered/Resolved]
  - Thrombocytopenia [Recovered/Resolved]
  - Cough [Unknown]
  - Oedema peripheral [Recovered/Resolved]
  - Abdominal pain [Recovered/Resolved]
  - Anaemia [Recovered/Resolved]
  - Off label use [Unknown]
  - Product storage error [Unknown]

NARRATIVE: CASE EVENT DATE: 20020116
